FAERS Safety Report 21212802 (Version 2)
Quarter: 2022Q4

REPORT INFORMATION
  Report Type: Spontaneous
  Country: US (occurrence: US)
  Receive Date: 20220815
  Receipt Date: 20221010
  Transmission Date: 20230113
  Serious: Yes (Hospitalization, Other)
  Sender: FDA-Public Use
  Company Number: US-BAYER-2022A112373

PATIENT
  Age: 26 Year
  Sex: Male

DRUGS (1)
  1. KOGENATE FS [Suspect]
     Active Substance: ANTIHEMOPHILIC FACTOR, HUMAN RECOMBINANT
     Indication: Factor VIII deficiency
     Dosage: 4100 U, TIW
     Route: 042
     Dates: start: 202203

REACTIONS (4)
  - Haemarthrosis [Not Recovered/Not Resolved]
  - Bone graft [None]
  - Bone graft [None]
  - Haemorrhage [None]

NARRATIVE: CASE EVENT DATE: 20220428
